FAERS Safety Report 18002528 (Version 1)
Quarter: 2020Q3

REPORT INFORMATION
  Report Type: Spontaneous
  Country: GB (occurrence: GB)
  Receive Date: 20200709
  Receipt Date: 20200709
  Transmission Date: 20201103
  Serious: Yes (Life-Threatening, Other)
  Sender: FDA-Public Use
  Company Number: GB-GLAXOSMITHKLINE-GB2020122569

PATIENT
  Age: 27 Year
  Sex: Male
  Weight: 105 kg

DRUGS (1)
  1. SUMATRIPTAN. [Suspect]
     Active Substance: SUMATRIPTAN
     Indication: MIGRAINE
     Dosage: 80 MG UNK
     Route: 048
     Dates: start: 20200604, end: 20200616

REACTIONS (10)
  - Chest discomfort [Unknown]
  - Head discomfort [Unknown]
  - Speech disorder [Unknown]
  - Limb discomfort [Unknown]
  - Dyspnoea [Unknown]
  - Hypersensitivity [Unknown]
  - Vertigo [Not Recovered/Not Resolved]
  - Vomiting [Unknown]
  - Syncope [Not Recovered/Not Resolved]
  - Feeling abnormal [Not Recovered/Not Resolved]

NARRATIVE: CASE EVENT DATE: 20200604
